FAERS Safety Report 6154220-9 (Version None)
Quarter: 2009Q2

REPORT INFORMATION
  Report Type: 
  Country: None (occurrence: None)
  Receive Date: 20090414
  Receipt Date: 20090403
  Transmission Date: 20091009
  Serious: Yes (Hospitalization)
  Sender: FDA-Public Use
  Company Number: TR-TYCO HEALTHCARE/MALLINCKRODT-T200900830

PATIENT
  Sex: Female
  Weight: 2.09 kg

DRUGS (2)
  1. FLUOXETINE [Suspect]
     Dosage: UNK
     Route: 064
  2. DIAZEPAM [Concomitant]
     Route: 064

REACTIONS (2)
  - DRUG EXPOSURE DURING PREGNANCY [None]
  - WITHDRAWAL SYNDROME [None]
